FAERS Safety Report 7183169-8 (Version None)
Quarter: 2010Q4

REPORT INFORMATION
  Report Type: 
  Country: None (occurrence: None)
  Receive Date: 20101222
  Receipt Date: 20101213
  Transmission Date: 20110411
  Serious: Yes (Other)
  Sender: FDA-Public Use
  Company Number: US-JNJFOC-20101105140

PATIENT
  Sex: Female
  Weight: 53.52 kg

DRUGS (5)
  1. REMICADE [Suspect]
     Indication: CROHN'S DISEASE
     Route: 042
  2. QVAR 40 [Concomitant]
     Indication: RHEUMATOID ARTHRITIS
     Route: 065
  3. SEREVENT [Concomitant]
     Indication: RHEUMATOID ARTHRITIS
     Route: 065
  4. ALBUTEROL [Concomitant]
     Indication: ASTHMA
     Route: 065
  5. BIRTH CONTROL PILLS [Concomitant]
     Route: 065

REACTIONS (2)
  - BLOOD POTASSIUM DECREASED [None]
  - DYSPNOEA [None]
